FAERS Safety Report 10826991 (Version 1)
Quarter: 2015Q1

REPORT INFORMATION
  Report Type: Report from Study
  Country: US (occurrence: US)
  Receive Date: 20150219
  Receipt Date: 20150219
  Transmission Date: 20150721
  Serious: No
  Sender: FDA-Public Use
  Company Number: US-ABBVIE-14K-163-1327297-00

PATIENT
  Sex: Female

DRUGS (2)
  1. HUMIRA [Suspect]
     Active Substance: ADALIMUMAB
     Indication: PSORIASIS
  2. HUMIRA [Suspect]
     Active Substance: ADALIMUMAB
     Indication: CROHN^S DISEASE
     Route: 065

REACTIONS (9)
  - Psoriasis [Not Recovered/Not Resolved]
  - Sleep terror [Unknown]
  - Extrasystoles [Not Recovered/Not Resolved]
  - Hot flush [Unknown]
  - Blood pressure diastolic increased [Unknown]
  - Erythema [Unknown]
  - Weight decreased [Not Recovered/Not Resolved]
  - Blood pressure decreased [Unknown]
  - Bronchopneumonia [Unknown]

NARRATIVE: CASE EVENT DATE: 2014
